FAERS Safety Report 4651858-2 (Version None)
Quarter: 2005Q2

REPORT INFORMATION
  Report Type: 
  Country: None (occurrence: None)
  Receive Date: 20050504
  Receipt Date: 20050429
  Transmission Date: 20051028
  Serious: Yes (Life-Threatening, Disabling, Other)
  Sender: FDA-Public Use
  Company Number: US-GLAXOSMITHKLINE-A0556316A

PATIENT
  Age: 13 Year
  Sex: Female

DRUGS (6)
  1. ADVAIR DISKUS 100/50 [Suspect]
     Indication: ASTHMA
     Route: 055
     Dates: start: 20040701, end: 20050420
  2. FLOVENT [Concomitant]
     Dosage: 110MCG TWICE PER DAY
  3. PULMICORT [Concomitant]
  4. PREDNISONE TAB [Concomitant]
     Route: 048
  5. ALLEGRA [Concomitant]
  6. SINGULAIR [Concomitant]

REACTIONS (3)
  - DEPRESSION [None]
  - PSYCHOTIC DISORDER [None]
  - SUICIDAL IDEATION [None]
